FAERS Safety Report 25241901 (Version 2)
Quarter: 2025Q2

REPORT INFORMATION
  Report Type: Spontaneous
  Country: CA (occurrence: CA)
  Receive Date: 20250426
  Receipt Date: 20250509
  Transmission Date: 20250716
  Serious: Yes (Other)
  Sender: CELLTRION
  Company Number: CA-CELLTRION INC.-2025CA012232

PATIENT

DRUGS (2)
  1. STEQEYMA [Suspect]
     Active Substance: USTEKINUMAB-STBA
     Indication: Crohn^s disease
     Route: 058
     Dates: start: 20250225
  2. STEQEYMA [Suspect]
     Active Substance: USTEKINUMAB-STBA
     Route: 058
     Dates: start: 20250422

REACTIONS (2)
  - Urinary retention [Recovered/Resolved]
  - Constipation [Recovered/Resolved]
